FAERS Safety Report 25038290 (Version 1)
Quarter: 2025Q1

REPORT INFORMATION
  Report Type: Spontaneous
  Country: US (occurrence: US)
  Receive Date: 20250304
  Receipt Date: 20250304
  Transmission Date: 20250409
  Serious: No
  Sender: PFIZER
  Company Number: US-PFIZER INC-202500046356

PATIENT
  Age: 69 Year
  Sex: Female

DRUGS (16)
  1. IBRANCE [Suspect]
     Active Substance: PALBOCICLIB
     Indication: Breast cancer female
     Dates: start: 20241210
  2. CARVEDILOL [Concomitant]
     Active Substance: CARVEDILOL
  3. FEBUXOSTAT [Concomitant]
     Active Substance: FEBUXOSTAT
  4. FLUTICASONE [Concomitant]
     Active Substance: FLUTICASONE
  5. FULVESTRANT [Concomitant]
     Active Substance: FULVESTRANT
  6. GEMTESA [Concomitant]
     Active Substance: VIBEGRON
  7. HYDROXYZINE [Concomitant]
     Active Substance: HYDROXYZINE HYDROCHLORIDE
  8. IMODIUM [Concomitant]
     Active Substance: LOPERAMIDE HYDROCHLORIDE
  9. INSULIN NOS [Concomitant]
     Active Substance: INSULIN NOS
  10. LANTUS [Concomitant]
     Active Substance: INSULIN GLARGINE
  11. METHYLPREDNISOLONE [Concomitant]
     Active Substance: METHYLPREDNISOLONE
  12. ONDANSETRON [Concomitant]
     Active Substance: ONDANSETRON
  13. PANTOPRAZOLE [Concomitant]
     Active Substance: PANTOPRAZOLE
  14. PROMETHAZINE [Concomitant]
     Active Substance: PROMETHAZINE HYDROCHLORIDE
  15. ROPINIROLE [Concomitant]
     Active Substance: ROPINIROLE
  16. STIOLTO RESPIMAT [Concomitant]
     Active Substance: OLODATEROL HYDROCHLORIDE\TIOTROPIUM BROMIDE MONOHYDRATE

REACTIONS (4)
  - Cellulitis [Not Recovered/Not Resolved]
  - Nausea [Not Recovered/Not Resolved]
  - Diarrhoea [Not Recovered/Not Resolved]
  - Neoplasm progression [Not Recovered/Not Resolved]
